APPROVED DRUG PRODUCT: ZEJULA
Active Ingredient: NIRAPARIB TOSYLATE
Strength: EQ 200MG BASE
Dosage Form/Route: TABLET;ORAL
Application: N214876 | Product #002
Applicant: GLAXOSMITHKLINE LLC
Approved: Apr 26, 2023 | RLD: Yes | RS: No | Type: RX

PATENTS:
Patent 8859562 | Expires: Aug 4, 2031
Patent 8143241 | Expires: Aug 12, 2027
Patent 8071579 | Expires: Aug 12, 2027
Patent 11673877 | Expires: Mar 27, 2038
Patent 11673877 | Expires: Mar 27, 2038
Patent 11091459 | Expires: Mar 27, 2038
Patent 8071623 | Expires: Mar 27, 2031
Patent 11730725 | Expires: Jan 25, 2039
Patent 8436185 | Expires: Apr 24, 2029